FAERS Safety Report 23847056 (Version 1)
Quarter: 2024Q2

REPORT INFORMATION
  Report Type: Spontaneous
  Country: NO (occurrence: NO)
  Receive Date: 20240513
  Receipt Date: 20240513
  Transmission Date: 20240715
  Serious: Yes (Other)
  Sender: FDA-Public Use
  Company Number: NO-NOMAADVRE-E2B_00096632

PATIENT

DRUGS (1)
  1. FLUORESCEIN SODIUM [Suspect]
     Active Substance: FLUORESCEIN SODIUM
     Indication: Angiogram retina
     Dosage: INTRAVENOUS INJECTION OF 2.5 ML (250 MG) VIA PERIPHERAL VENOUS CATHETER (VENFLON), LEFT ARM
     Route: 042
     Dates: start: 20240418, end: 20240418

REACTIONS (6)
  - Blood pressure decreased [Recovered/Resolved]
  - Confusional state [Recovered/Resolved]
  - Muscle spasms [Recovered/Resolved]
  - Loss of consciousness [Recovered/Resolved]
  - Cold sweat [Recovered/Resolved]
  - Syncope [Recovered/Resolved]

NARRATIVE: CASE EVENT DATE: 20240418
